FAERS Safety Report 24670010 (Version 1)
Quarter: 2024Q4

REPORT INFORMATION
  Report Type: Spontaneous
  Country: US (occurrence: US)
  Receive Date: 20241127
  Receipt Date: 20241127
  Transmission Date: 20250115
  Serious: Yes (Hospitalization)
  Sender: ACCORD
  Company Number: US-MLMSERVICE-20241108-PI253311-00162-1

PATIENT
  Age: 62 Year
  Sex: Female

DRUGS (8)
  1. FUROSEMIDE [Suspect]
     Active Substance: FUROSEMIDE
     Indication: Diuretic therapy
  2. SPIRONOLACTONE [Suspect]
     Active Substance: SPIRONOLACTONE
     Indication: Diuretic therapy
  3. TIRZEPATIDE [Suspect]
     Active Substance: TIRZEPATIDE
     Indication: Weight decreased
     Dosage: LOW-DOSE
     Route: 058
  4. ELIQUIS [Concomitant]
     Active Substance: APIXABAN
  5. ATORVASTATIN [Concomitant]
     Active Substance: ATORVASTATIN
  6. FLUOXETINE [Concomitant]
     Active Substance: FLUOXETINE HYDROCHLORIDE
  7. LISINOPRIL [Concomitant]
     Active Substance: LISINOPRIL
  8. ATENOLOL [Concomitant]
     Active Substance: ATENOLOL

REACTIONS (1)
  - Colitis ischaemic [Recovered/Resolved]
